FAERS Safety Report 22043657 (Version 2)
Quarter: 2023Q1

REPORT INFORMATION
  Report Type: Spontaneous
  Country: JP (occurrence: JP)
  Receive Date: 20230228
  Receipt Date: 20230309
  Transmission Date: 20230418
  Serious: Yes (Death, Life-Threatening, Hospitalization, Other)
  Sender: FDA-Public Use
  Company Number: JP-MLMSERVICE-20230214-4105585-1

PATIENT
  Age: 56 Year
  Sex: Female

DRUGS (17)
  1. MELPHALAN [Suspect]
     Active Substance: MELPHALAN
     Indication: Bone marrow conditioning regimen
     Dosage: UNK
     Route: 065
  2. ADRIAMYCIN [Suspect]
     Active Substance: DOXORUBICIN HYDROCHLORIDE
     Indication: Nodular lymphocyte predominant Hodgkin lymphoma
     Dosage: UNK (FOUR CYCLES OF ABVD)
     Route: 065
  3. BLEOMYCIN [Suspect]
     Active Substance: BLEOMYCIN SULFATE
     Indication: Nodular lymphocyte predominant Hodgkin lymphoma
     Dosage: UNK (FOUR CYCLES OF ABVD)
     Route: 065
  4. BRENTUXIMAB VEDOTIN [Suspect]
     Active Substance: BRENTUXIMAB VEDOTIN
     Indication: Nodular lymphocyte predominant Hodgkin lymphoma
     Dosage: UNK (FIVE CYCLES OF BV)
     Route: 065
  5. CISPLATIN [Suspect]
     Active Substance: CISPLATIN
     Indication: Nodular lymphocyte predominant Hodgkin lymphoma
     Dosage: UNK (TWO CYCLES OF GDP)
     Route: 065
  6. CYTARABINE [Suspect]
     Active Substance: CYTARABINE
     Indication: Bone marrow conditioning regimen
     Dosage: UNK
     Route: 065
  7. DACARBAZINE [Suspect]
     Active Substance: DACARBAZINE
     Indication: Nodular lymphocyte predominant Hodgkin lymphoma
     Dosage: UNK (FOUR CYCLES OF ABVD)
     Route: 065
  8. DEXAMETHASONE [Suspect]
     Active Substance: DEXAMETHASONE
     Indication: Nodular lymphocyte predominant Hodgkin lymphoma
     Dosage: UNK (TWO CYCLES OF GDP)
     Route: 065
  9. ETOPOSIDE [Suspect]
     Active Substance: ETOPOSIDE
     Indication: Bone marrow conditioning regimen
     Dosage: UNK
     Route: 065
  10. GEMCITABINE [Suspect]
     Active Substance: GEMCITABINE
     Indication: Nodular lymphocyte predominant Hodgkin lymphoma
     Dosage: UNK (TWO CYCLES OF GDP)
     Route: 065
  11. PREDNISOLONE [Suspect]
     Active Substance: PREDNISOLONE
     Indication: Febrile neutropenia
     Dosage: 40 MILLIGRAM, ONCE A DAY (ON DAY 3 POSTADMISSION)
     Route: 065
  12. PREDNISOLONE [Suspect]
     Active Substance: PREDNISOLONE
     Dosage: 20 MILLIGRAM, ONCE A DAY
     Route: 065
  13. PREDNISOLONE [Suspect]
     Active Substance: PREDNISOLONE
     Dosage: UNK (INCREASED)
     Route: 065
  14. RANIMUSTINE [Suspect]
     Active Substance: RANIMUSTINE
     Indication: Bone marrow conditioning regimen
     Dosage: UNK
     Route: 065
  15. VINBLASTINE [Suspect]
     Active Substance: VINBLASTINE
     Indication: Nodular lymphocyte predominant Hodgkin lymphoma
     Dosage: UNK (FOUR CYCLES OF ABVD)
     Route: 065
  16. CEFEPIME [Concomitant]
     Active Substance: CEFEPIME HYDROCHLORIDE
     Indication: Febrile neutropenia
     Dosage: UNK
     Route: 065
  17. FILGRASTIM [Concomitant]
     Active Substance: FILGRASTIM
     Indication: Febrile neutropenia
     Dosage: UNK
     Route: 065

REACTIONS (2)
  - Pneumocystis jirovecii pneumonia [Fatal]
  - Gastroenteritis bacterial [Fatal]
